FAERS Safety Report 23287604 (Version 1)
Quarter: 2023Q4

REPORT INFORMATION
  Report Type: Spontaneous
  Country: US (occurrence: None)
  Receive Date: 20231210
  Receipt Date: 20231210
  Transmission Date: 20240110
  Serious: No
  Sender: FDA-Public Use
  Company Number: None

PATIENT
  Age: 63 Year
  Sex: Female
  Weight: 110.25 kg

DRUGS (6)
  1. OZEMPIC [Suspect]
     Active Substance: SEMAGLUTIDE
     Indication: Diabetes mellitus
     Dosage: OTHER QUANTITY : 1 INJECTION(S);?OTHER FREQUENCY : ONCE A WEEK;?
     Route: 058
     Dates: start: 20231115, end: 20231201
  2. XARELTO [Concomitant]
     Active Substance: RIVAROXABAN
  3. MAGNESIUM [Concomitant]
     Active Substance: MAGNESIUM
  4. VITAMIN D3 [Concomitant]
     Active Substance: CHOLECALCIFEROL
  5. BERBERINE [Concomitant]
     Active Substance: BERBERINE
  6. b1,5,6,9,12 [Concomitant]

REACTIONS (4)
  - Dizziness [None]
  - Vertigo [None]
  - Nausea [None]
  - Gait inability [None]

NARRATIVE: CASE EVENT DATE: 20231201
